FAERS Safety Report 10913055 (Version 3)
Quarter: 2015Q2

REPORT INFORMATION
  Report Type: Spontaneous
  Country: US (occurrence: US)
  Receive Date: 20150313
  Receipt Date: 20150413
  Transmission Date: 20150821
  Serious: Yes (Hospitalization, Other)
  Sender: FDA-Public Use
  Company Number: US-ABBVIE-15P-163-1358973-00

PATIENT
  Age: 51 Year
  Sex: Male

DRUGS (1)
  1. ANDROGEL [Suspect]
     Active Substance: TESTOSTERONE
     Indication: BLOOD TESTOSTERONE DECREASED
     Route: 065
     Dates: start: 201104, end: 201106

REACTIONS (7)
  - Myocardial infarction [Unknown]
  - Impaired work ability [Unknown]
  - Economic problem [Unknown]
  - Ischaemic cardiomyopathy [Unknown]
  - Arterial stenosis [Unknown]
  - Pain [Unknown]
  - Anxiety [Unknown]

NARRATIVE: CASE EVENT DATE: 20110718
